FAERS Safety Report 25906303 (Version 4)
Quarter: 2025Q4

REPORT INFORMATION
  Report Type: Spontaneous
  Country: US (occurrence: US)
  Receive Date: 20251010
  Receipt Date: 20251107
  Transmission Date: 20260118
  Serious: No
  Sender: TORRENT PHARMA INC.
  Company Number: US-TORRENT-00014548

PATIENT
  Age: 72 Year
  Sex: Female
  Weight: 74 kg

DRUGS (2)
  1. CITALOPRAM [Suspect]
     Active Substance: CITALOPRAM
     Indication: Depression
     Dosage: ONCE A DAY AND HALF AN EXTRA TABLET THE DAY BEFORE AND A FULL TABLET ON THE DAY
     Route: 065
     Dates: start: 20250827
  2. RALOXIFENE [Concomitant]
     Active Substance: RALOXIFENE
     Indication: Breast cancer
     Dosage: 60MG, FOR OVER 20 YEARS
     Route: 048

REACTIONS (4)
  - Drug ineffective [Unknown]
  - Flashback [Recovering/Resolving]
  - Neurological symptom [Recovering/Resolving]
  - Feeling abnormal [Recovering/Resolving]

NARRATIVE: CASE EVENT DATE: 20251001
